FAERS Safety Report 8477824-7 (Version None)
Quarter: 2012Q2

REPORT INFORMATION
  Report Type: 
  Country: None (occurrence: None)
  Receive Date: 20120629
  Receipt Date: 20120626
  Transmission Date: 20120825
  Serious: Yes (Hospitalization)
  Sender: FDA-Public Use
  Company Number: GB-PFIZER INC-2012153292

PATIENT
  Age: 89 Year
  Sex: Female

DRUGS (5)
  1. MOXONIDINE [Concomitant]
  2. AMLODIPINE [Concomitant]
  3. CO-AMILOFRUSE [Concomitant]
  4. IBUPROFEN [Suspect]
     Dosage: UNK
     Route: 048
     Dates: start: 20120501, end: 20120508
  5. DOXAZOSIN [Concomitant]

REACTIONS (4)
  - GASTRIC ULCER HAEMORRHAGE [None]
  - MELAENA [None]
  - HAEMOGLOBIN DECREASED [None]
  - ANAEMIA [None]
